FAERS Safety Report 6541802-5 (Version None)
Quarter: 2010Q1

REPORT INFORMATION
  Report Type: 
  Country: None (occurrence: None)
  Receive Date: 20100119
  Receipt Date: 20100108
  Transmission Date: 20100710
  Serious: Yes (Other)
  Sender: FDA-Public Use
  Company Number: PHHY2009DE31919

PATIENT
  Sex: Female
  Weight: 57 kg

DRUGS (1)
  1. ACLASTA [Suspect]
     Indication: OSTEOPOROSIS
     Dosage: 5 MG ONCE YEARLY
     Route: 042
     Dates: start: 20090723, end: 20090723

REACTIONS (1)
  - JOINT EFFUSION [None]
